FAERS Safety Report 7520506-6 (Version None)
Quarter: 2011Q2

REPORT INFORMATION
  Report Type: 
  Country: None (occurrence: None)
  Receive Date: 20110602
  Receipt Date: 20110524
  Transmission Date: 20111010
  Serious: Yes (Other)
  Sender: FDA-Public Use
  Company Number: JP-ELI_LILLY_AND_COMPANY-JP201101006170

PATIENT
  Sex: Female
  Weight: 38 kg

DRUGS (15)
  1. MIRTAZAPINE [Concomitant]
     Indication: MAJOR DEPRESSION
     Dosage: 45 MG, QD
     Dates: end: 20100825
  2. DULOXETINE HYDROCHLORIDE [Suspect]
     Dosage: 60 MG, QD
     Dates: start: 20100923, end: 20100930
  3. DULOXETINE HYDROCHLORIDE [Suspect]
     Dosage: 20 MG, QD
     Dates: start: 20101008, end: 20101020
  4. OLANZAPINE [Concomitant]
     Indication: MAJOR DEPRESSION
     Dosage: 2.5 MG, DAILY (1/D)
     Route: 048
     Dates: start: 20090701, end: 20101008
  5. DULOXETINE HYDROCHLORIDE [Suspect]
     Dosage: 40 MG, QD
     Dates: start: 20100909, end: 20100922
  6. ROHYPNOL [Concomitant]
     Indication: INSOMNIA
     Dosage: 1 MG, PRN
     Route: 048
     Dates: end: 20101020
  7. ROHYPNOL [Concomitant]
     Dosage: 1 MG, PRN
     Route: 048
  8. MIRTAZAPINE [Concomitant]
     Dosage: 30 MG, QD
     Dates: start: 20100826, end: 20100908
  9. DULOXETINE HYDROCHLORIDE [Suspect]
     Indication: MAJOR DEPRESSION
     Dosage: 20 MG, QD
     Route: 048
     Dates: start: 20100826, end: 20100908
  10. LEVOTHYROXINE SODIUM [Concomitant]
     Indication: MAJOR DEPRESSION
     Dosage: 50 UG, DAILY (1/D)
     Route: 048
  11. MIRTAZAPINE [Concomitant]
     Dosage: 15 MG, QD
     Dates: start: 20100909, end: 20100922
  12. DULOXETINE HYDROCHLORIDE [Suspect]
     Dosage: 40 MG, QD
     Dates: start: 20101001, end: 20101007
  13. ZOLPIDEM [Concomitant]
     Indication: INSOMNIA
     Dosage: 10 MG, PRN
     Route: 048
     Dates: start: 20090701
  14. METLIGINE [Concomitant]
     Indication: HYPOTENSION
     Dosage: 6 MG, DAILY (1/D)
     Route: 048
  15. RISUMIC [Concomitant]
     Indication: HYPOTENSION
     Dosage: 20 MG, DAILY (1/D)
     Route: 048

REACTIONS (2)
  - LOSS OF CONSCIOUSNESS [None]
  - CONVULSION [None]
